FAERS Safety Report 13660763 (Version 1)
Quarter: 2017Q2

REPORT INFORMATION
  Report Type: Spontaneous
  Country: IT (occurrence: IT)
  Receive Date: 20170616
  Receipt Date: 20170616
  Transmission Date: 20170830
  Serious: No
  Sender: FDA-Public Use
  Company Number: IT-BIOGEN-2016BI00323379

PATIENT
  Age: 9 Year
  Weight: 48 kg

DRUGS (3)
  1. ELOCTA [Suspect]
     Active Substance: EFMOROCTOCOG ALFA
     Route: 065
     Dates: start: 20161110, end: 20161110
  2. ELOCTA [Suspect]
     Active Substance: EFMOROCTOCOG ALFA
     Indication: FACTOR VIII DEFICIENCY
     Route: 065
  3. ELOCTA [Suspect]
     Active Substance: EFMOROCTOCOG ALFA
     Dosage: 40 IU/KG, INJECTION FREQUENCT NOT KNOWN
     Route: 065
     Dates: start: 20161107, end: 20161107

REACTIONS (1)
  - No adverse event [Unknown]
